FAERS Safety Report 15995908 (Version 1)
Quarter: 2019Q1

REPORT INFORMATION
  Report Type: Spontaneous
  Country: US (occurrence: US)
  Receive Date: 20190222
  Receipt Date: 20190222
  Transmission Date: 20190418
  Serious: No
  Sender: FDA-Public Use
  Company Number: US-PERRIGO-18US007440

PATIENT
  Sex: Female

DRUGS (1)
  1. LOPERAMIDE HYDROCHLORIDE. [Suspect]
     Active Substance: LOPERAMIDE HYDROCHLORIDE
     Indication: PRODUCT USED FOR UNKNOWN INDICATION
     Dosage: UNKNOWN, UNKNOWN
     Route: 048
     Dates: start: 20180717, end: 20180717

REACTIONS (7)
  - Swollen tongue [Unknown]
  - Eye irritation [Unknown]
  - Eye pruritus [Unknown]
  - Cough [Unknown]
  - Arthralgia [Unknown]
  - Asthma [Unknown]
  - Sneezing [Unknown]

NARRATIVE: CASE EVENT DATE: 20180718
